APPROVED DRUG PRODUCT: SILDENAFIL CITRATE
Active Ingredient: SILDENAFIL CITRATE
Strength: EQ 50MG BASE
Dosage Form/Route: TABLET;ORAL
Application: A202506 | Product #002
Applicant: WATSON LABORATORIES INC
Approved: Nov 25, 2020 | RLD: No | RS: No | Type: DISCN